FAERS Safety Report 22069611 (Version 1)
Quarter: 2023Q1

REPORT INFORMATION
  Report Type: Spontaneous
  Country: US (occurrence: US)
  Receive Date: 20230307
  Receipt Date: 20230307
  Transmission Date: 20230418
  Serious: No
  Sender: FDA-Public Use
  Company Number: US-AMNEAL PHARMACEUTICALS-2022-AMRX-03311

PATIENT
  Age: 62 Year
  Sex: Female

DRUGS (6)
  1. RYTARY [Suspect]
     Active Substance: CARBIDOPA\LEVODOPA
     Indication: Product used for unknown indication
     Dosage: 1 CAPSULES (36.25-145 MG), TID
     Route: 048
  2. RYTARY [Suspect]
     Active Substance: CARBIDOPA\LEVODOPA
     Dosage: 1 CAPSULES (48.75-195 MG), DAILY
     Route: 048
     Dates: start: 20220228
  3. RYTARY [Suspect]
     Active Substance: CARBIDOPA\LEVODOPA
     Dosage: 5 CAPSULES (36.25- 145 MG), DAILY
     Route: 048
  4. RYTARY [Suspect]
     Active Substance: CARBIDOPA\LEVODOPA
     Dosage: 145 MG 2 CAPS PO BID AND 195 MG 1 CAP PO ONCE A DAY
     Route: 048
     Dates: start: 20220823
  5. RYTARY [Suspect]
     Active Substance: CARBIDOPA\LEVODOPA
     Dosage: 36.25-145 MG 2 CAPS AT 6 AM,1 CAPS AT 10:30 AM AND 4:30 AM AND 48.75 -195 MG 1 CAPS DAILY AT 1:30 PM
     Route: 048
     Dates: start: 20220901
  6. RYTARY [Suspect]
     Active Substance: CARBIDOPA\LEVODOPA
     Dosage: 36.25-145 MG 1 CAPSULE 6 TIMES DAILY
     Route: 048
     Dates: start: 20230131

REACTIONS (2)
  - COVID-19 [Unknown]
  - Expired product administered [Unknown]

NARRATIVE: CASE EVENT DATE: 20220910
